FAERS Safety Report 13980489 (Version 1)
Quarter: 2017Q3

REPORT INFORMATION
  Report Type: Spontaneous
  Country: CA (occurrence: CA)
  Receive Date: 20170918
  Receipt Date: 20170918
  Transmission Date: 20171128
  Serious: Yes (Death)
  Sender: FDA-Public Use
  Company Number: CA-009507513-1709CAN005902

PATIENT
  Age: 64 Year
  Sex: Female
  Weight: 52.15 kg

DRUGS (1)
  1. KEYTRUDA [Suspect]
     Active Substance: PEMBROLIZUMAB
     Dosage: 2 MG, UNK
     Route: 042

REACTIONS (1)
  - Death [Fatal]
